FAERS Safety Report 5741169-6 (Version None)
Quarter: 2008Q2

REPORT INFORMATION
  Report Type: 
  Country: None (occurrence: None)
  Receive Date: 20080514
  Receipt Date: 20080429
  Transmission Date: 20081010
  Serious: No
  Sender: FDA-Public Use
  Company Number: 002#2#2008-00304

PATIENT
  Age: 53 Year
  Sex: Female
  Weight: 63.5036 kg

DRUGS (7)
  1. NEUPRO [Suspect]
     Indication: PARKINSON'S DISEASE
     Dosage: 2MG/24H,1 IN 1 D,TRANSDERMAL;  6MG/24H,1 IN 1 D,TRANSDERMAL;  8MG/24H,1 IN 1 D,TRANSDERMAL
     Route: 062
     Dates: start: 20070601, end: 20080401
  2. NEUPRO [Suspect]
     Indication: PARKINSON'S DISEASE
     Dosage: 2MG/24H,1 IN 1 D,TRANSDERMAL;  6MG/24H,1 IN 1 D,TRANSDERMAL;  8MG/24H,1 IN 1 D,TRANSDERMAL
     Route: 062
     Dates: start: 20070601
  3. NEUPRO [Suspect]
  4. PARCOPA [Suspect]
     Indication: DRUG USE FOR UNKNOWN INDICATION
     Dosage: ORAL
     Route: 048
     Dates: start: 20060101
  5. MIDODRINE [Concomitant]
  6. SELETILINE [Concomitant]
  7. NICOTINE [Concomitant]

REACTIONS (1)
  - PARKINSON'S DISEASE [None]
